FAERS Safety Report 8223385-7 (Version None)
Quarter: 2012Q1

REPORT INFORMATION
  Report Type: 
  Country: None (occurrence: None)
  Receive Date: 20120312
  Receipt Date: 20120304
  Transmission Date: 20120608
  Serious: Yes (Other)
  Sender: FDA-Public Use
  Company Number: 7117141

PATIENT
  Age: 47 Year
  Sex: Female

DRUGS (5)
  1. LEVOTHYROXINE SODIUM [Suspect]
     Indication: HYPOTHYROIDISM
     Dosage: SEE IMAGE: ORAL
     Route: 048
     Dates: start: 20111101, end: 20120201
  2. LEVOTHYROXINE SODIUM [Suspect]
     Indication: HYPOTHYROIDISM
     Dosage: SEE IMAGE: ORAL
     Route: 048
     Dates: start: 20120201, end: 20120227
  3. LITORBA (ATORVASTATIN) [Concomitant]
  4. LEVOTHYROXINE SODIUM [Suspect]
     Indication: HYPOTHYROIDISM
     Dosage: 850 MCG, OLD FORMULATION, 850 MCG, NEW FORMULATION
     Dates: start: 20110901, end: 20111101
  5. LEVOTHYROXINE SODIUM [Suspect]
     Indication: HYPOTHYROIDISM
     Dosage: 850 MCG, OLD FORMULATION, 850 MCG, NEW FORMULATION
     Dates: start: 19960101, end: 20110901

REACTIONS (3)
  - DYSPNOEA [None]
  - ASPHYXIA [None]
  - HYPERSENSITIVITY [None]
